FAERS Safety Report 15168864 (Version 3)
Quarter: 2020Q4

REPORT INFORMATION
  Report Type: Spontaneous
  Country: NL (occurrence: NL)
  Receive Date: 20180720
  Receipt Date: 20201231
  Transmission Date: 20210113
  Serious: Yes (Death, Other)
  Sender: FDA-Public Use
  Company Number: NL-AUROBINDO-AUR-APL-2018-031032

PATIENT
  Age: 24 Year
  Sex: Male
  Weight: 100 kg

DRUGS (2)
  1. METOPROLOL 50MG [Suspect]
     Active Substance: METOPROLOL
     Indication: TACHYCARDIA
     Dosage: 1D1 VOOR HET SLAPEN.
     Route: 050
     Dates: start: 2016
  2. CLOZAPINE AUROBINDO 100 MG TABLET [Suspect]
     Active Substance: CLOZAPINE
     Indication: PSYCHOTIC DISORDER
     Dosage: 1DD 550 MG VOOR DE NACHT
     Route: 065
     Dates: start: 2016

REACTIONS (1)
  - Death [Fatal]

NARRATIVE: CASE EVENT DATE: 20180525
